FAERS Safety Report 25994972 (Version 2)
Quarter: 2025Q4

REPORT INFORMATION
  Report Type: Report from Study
  Country: RU (occurrence: RU)
  Receive Date: 20251104
  Receipt Date: 20251110
  Transmission Date: 20260117
  Serious: Yes (Death)
  Sender: ROCHE
  Company Number: RU-ROCHE-10000424073

PATIENT

DRUGS (1)
  1. GLOFITAMAB [Suspect]
     Active Substance: GLOFITAMAB
     Indication: Product used for unknown indication
     Route: 065

REACTIONS (13)
  - B-cell lymphoma [Fatal]
  - Anaemia [Fatal]
  - Thrombocytopenia [Fatal]
  - Neutropenia [Fatal]
  - Febrile neutropenia [Fatal]
  - Pyrexia [Fatal]
  - Alanine aminotransferase increased [Fatal]
  - Aspartate aminotransferase increased [Fatal]
  - Mucosal inflammation [Fatal]
  - Infection [Fatal]
  - Cytokine release syndrome [Fatal]
  - Tumour flare [Fatal]
  - Death [Fatal]
